FAERS Safety Report 10102239 (Version 2)
Quarter: 2014Q2

REPORT INFORMATION
  Report Type: Other
  Country: US (occurrence: US)
  Receive Date: 20140424
  Receipt Date: 20140609
  Transmission Date: 20141212
  Serious: Yes (Hospitalization, Other)
  Sender: FDA-Public Use
  Company Number: US-GSKPPD-2014GSK000034

PATIENT
  Age: 80 Year
  Sex: Male

DRUGS (7)
  1. AVANDIA [Suspect]
     Indication: DIABETES MELLITUS
     Dosage: DATE OF AVANDIA USE COULD NOT BE CONFIRMED IN RECORDS REVIEWED.
     Route: 048
     Dates: end: 2005
  2. ATENOLOL [Concomitant]
     Route: 048
  3. CLOPIDOGREL [Concomitant]
     Route: 048
  4. ACETYLSALICYLIC ACID [Concomitant]
     Route: 048
  5. AMLODIPINE [Concomitant]
     Route: 048
  6. LISINOPRIL [Concomitant]
     Route: 048
  7. NITROGLYCERIN [Concomitant]
     Route: 060

REACTIONS (1)
  - Myocardial infarction [Recovered/Resolved]
